FAERS Safety Report 22605579 (Version 2)
Quarter: 2023Q2

REPORT INFORMATION
  Report Type: Spontaneous
  Country: DE (occurrence: DE)
  Receive Date: 20230615
  Receipt Date: 20230626
  Transmission Date: 20230722
  Serious: Yes (Hospitalization, Other)
  Sender: FDA-Public Use
  Company Number: DE-TEVA-2023-DE-2897952

PATIENT
  Age: 11 Year
  Sex: Male

DRUGS (12)
  1. PIPERACILLIN SODIUM\TAZOBACTAM SODIUM [Suspect]
     Active Substance: PIPERACILLIN SODIUM\TAZOBACTAM SODIUM
     Indication: COVID-19 pneumonia
     Route: 065
  2. DEXAMETHASONE [Suspect]
     Active Substance: DEXAMETHASONE
     Indication: COVID-19 pneumonia
     Route: 042
  3. REMDESIVIR [Suspect]
     Active Substance: REMDESIVIR
     Indication: COVID-19 pneumonia
     Dosage: ON DAY 1
     Route: 042
  4. REMDESIVIR [Suspect]
     Active Substance: REMDESIVIR
     Dosage: AFTER DAY 1
     Route: 042
  5. PREGABALIN [Concomitant]
     Active Substance: PREGABALIN
     Indication: Dystonia
     Route: 065
  6. TETRABENAZINE [Concomitant]
     Active Substance: TETRABENAZINE
     Indication: Dystonia
     Route: 065
  7. VALPROATE [Concomitant]
     Active Substance: VALPROIC ACID
     Indication: Seizure
     Route: 065
  8. LAMOTRIGINE [Concomitant]
     Active Substance: LAMOTRIGINE
     Indication: Seizure
     Route: 065
  9. CANNABIDIOL [Concomitant]
     Active Substance: CANNABIDIOL
     Indication: Seizure
     Route: 065
  10. ALBUTEROL [Concomitant]
     Active Substance: ALBUTEROL
     Indication: Respiratory disorder
     Route: 055
  11. FLUTICASONE [Concomitant]
     Active Substance: FLUTICASONE
     Indication: Respiratory disorder
     Route: 055
  12. SODIUM CHLORIDE [Concomitant]
     Active Substance: SODIUM CHLORIDE
     Indication: Vehicle solution use
     Dosage: AT LEAST TWICE DAILY, HYPEROSMOTIC
     Route: 065

REACTIONS (3)
  - Drug ineffective for unapproved indication [Unknown]
  - Sinus bradycardia [Unknown]
  - Off label use [Unknown]
